FAERS Safety Report 17438641 (Version 2)
Quarter: 2020Q3

REPORT INFORMATION
  Report Type: Spontaneous
  Country: US (occurrence: US)
  Receive Date: 20200220
  Receipt Date: 20200901
  Transmission Date: 20201102
  Serious: Yes (Other)
  Sender: FDA-Public Use
  Company Number: US-ASTRAZENECA-2020SE24312

PATIENT
  Age: 60 Year
  Sex: Female
  Weight: 122.5 kg

DRUGS (103)
  1. GLIPIZIDE. [Concomitant]
     Active Substance: GLIPIZIDE
     Indication: DIABETES MELLITUS
     Dates: start: 2011
  2. TYLENOL [Concomitant]
     Active Substance: ACETAMINOPHEN
     Indication: HEADACHE
  3. MULTIVITAMINS [Concomitant]
     Active Substance: VITAMINS
     Indication: NUTRITIONAL SUPPLEMENTATION
  4. CALCIUM [Concomitant]
     Active Substance: CALCIUM
     Indication: NUTRITIONAL SUPPLEMENTATION
  5. FAMOTIDINE. [Concomitant]
     Active Substance: FAMOTIDINE
     Dates: start: 2008, end: 2010
  6. METFORMIN [Concomitant]
     Active Substance: METFORMIN HYDROCHLORIDE
     Dates: start: 2000, end: 2010
  7. LOVASTATIN. [Concomitant]
     Active Substance: LOVASTATIN
     Dates: start: 2000, end: 2010
  8. PROMETHAZINE [Concomitant]
     Active Substance: PROMETHAZINE HYDROCHLORIDE
     Dates: start: 2000, end: 2010
  9. HYOSCYAMINE. [Concomitant]
     Active Substance: HYOSCYAMINE
     Dates: start: 2000, end: 2010
  10. HYDROXYZINE PAMOATE. [Concomitant]
     Active Substance: HYDROXYZINE PAMOATE
     Dates: start: 2000, end: 2010
  11. LIDOCAINE VISCOUS [Concomitant]
     Active Substance: LIDOCAINE HYDROCHLORIDE
     Dates: start: 2000, end: 2010
  12. TESSALON [Concomitant]
     Active Substance: BENZONATATE
     Dates: start: 2000, end: 2010
  13. ZOFRAN [Concomitant]
     Active Substance: ONDANSETRON HYDROCHLORIDE
     Dates: start: 2000, end: 2010
  14. TERCONAZOLE. [Concomitant]
     Active Substance: TERCONAZOLE
     Dates: start: 2000, end: 2010
  15. DEXILANT [Suspect]
     Active Substance: DEXLANSOPRAZOLE
     Indication: GASTROOESOPHAGEAL REFLUX DISEASE
     Dosage: 60.0MG UNKNOWN
     Route: 065
     Dates: start: 2010
  16. FLUCONAZOLE. [Concomitant]
     Active Substance: FLUCONAZOLE
     Indication: INFECTION
     Dates: start: 2011
  17. HYDROCOD/ACETA [Concomitant]
     Dates: start: 2000, end: 2010
  18. MECLIZINE [Concomitant]
     Active Substance: MECLIZINE HYDROCHLORIDE
     Dates: start: 2000, end: 2010
  19. DILTIAZ [Concomitant]
     Active Substance: DILTIAZEM HYDROCHLORIDE
     Dates: start: 2000, end: 2010
  20. CIPROFLOXACIN. [Concomitant]
     Active Substance: CIPROFLOXACIN
     Dates: start: 2000, end: 2010
  21. LEVOTHYROXINE SODIUM. [Concomitant]
     Active Substance: LEVOTHYROXINE SODIUM
     Dates: start: 2000, end: 2010
  22. AMOXICILLIN. [Concomitant]
     Active Substance: AMOXICILLIN
     Dates: start: 2000, end: 2010
  23. MORPHINE SULFATE. [Concomitant]
     Active Substance: MORPHINE SULFATE
     Dates: start: 2000, end: 2010
  24. DICLOFENAC SODIUM. [Concomitant]
     Active Substance: DICLOFENAC SODIUM
     Dates: start: 2000, end: 2010
  25. BELSOMRA [Concomitant]
     Active Substance: SUVOREXANT
     Dates: start: 2000, end: 2010
  26. PNEUMOVAX 23 [Concomitant]
     Active Substance: PNEUMOCOCCAL VACCINE, POLYVALENT 23
     Dates: start: 2000, end: 2010
  27. HYDROXYZINE [Concomitant]
     Active Substance: HYDROXYZINE HYDROCHLORIDE
     Indication: ANXIETY
     Dates: start: 2011
  28. TRULICITY [Concomitant]
     Active Substance: DULAGLUTIDE
     Indication: DIABETES MELLITUS
  29. BENADRYL [Concomitant]
     Active Substance: DIPHENHYDRAMINE HYDROCHLORIDE
     Indication: HYPERSENSITIVITY
  30. TUMS [Concomitant]
     Active Substance: CALCIUM CARBONATE
     Dates: start: 2000, end: 2010
  31. SMZ/TMP [Concomitant]
     Active Substance: SULFAMETHOXAZOLE\TRIMETHOPRIM
     Dates: start: 2000, end: 2010
  32. DARVOCET [Concomitant]
     Active Substance: ACETAMINOPHEN\PROPOXYPHENE HYDROCHLORIDE
     Dates: start: 2000, end: 2010
  33. ESTRADIOL. [Concomitant]
     Active Substance: ESTRADIOL
     Dates: start: 2000, end: 2010
  34. CYMBAITA [Concomitant]
     Dates: start: 2000, end: 2010
  35. ROCEHIN [Concomitant]
     Dates: start: 2000, end: 2010
  36. CLAVULANATE [Concomitant]
     Active Substance: CLAVULANIC ACID
     Dates: start: 2000, end: 2010
  37. AUGMENTIN [Concomitant]
     Active Substance: AMOXICILLIN\CLAVULANATE POTASSIUM
     Dates: start: 2000, end: 2010
  38. CARITA [Concomitant]
     Dates: start: 2000, end: 2010
  39. AMITRIPTYLINE [Concomitant]
     Active Substance: AMITRIPTYLINE
     Dates: start: 2000, end: 2010
  40. MS CONTIN [Concomitant]
     Active Substance: MORPHINE SULFATE
     Dates: start: 2000, end: 2010
  41. NEXIUM [Suspect]
     Active Substance: ESOMEPRAZOLE MAGNESIUM
     Indication: GASTROOESOPHAGEAL REFLUX DISEASE
     Dosage: 60.0MG UNKNOWN
     Route: 048
     Dates: start: 2000, end: 2010
  42. BUPROPION. [Concomitant]
     Active Substance: BUPROPION
     Indication: DEPRESSION
  43. LEVOTHYROXINE. [Concomitant]
     Active Substance: LEVOTHYROXINE
     Indication: HYPOTHYROIDISM
     Dates: start: 2011
  44. MORPHINE [Concomitant]
     Active Substance: MORPHINE
     Indication: PAIN
  45. ROPINIROLE. [Concomitant]
     Active Substance: ROPINIROLE
     Indication: PARKINSON^S DISEASE
  46. VITAMIN D [Concomitant]
     Active Substance: VITAMIN D NOS
     Indication: NUTRITIONAL SUPPLEMENTATION
  47. ALKA?SELTZER [Concomitant]
     Active Substance: ANHYDROUS CITRIC ACID\ASPIRIN\SODIUM BICARBONATE
     Dates: start: 2000, end: 2010
  48. MAALOX ANTACID [Concomitant]
     Active Substance: ALUMINUM HYDROXIDE\DIMETHICONE\MAGNESIUM HYDROXIDE
     Dates: start: 2000, end: 2010
  49. CLOTRIM/BETA [Concomitant]
     Dates: start: 2000, end: 2010
  50. DURAGESIC [Concomitant]
     Active Substance: FENTANYL
     Dates: start: 2000, end: 2010
  51. ZITHROMAX [Concomitant]
     Active Substance: AZITHROMYCIN DIHYDRATE
     Dates: start: 2000, end: 2010
  52. IBUPROFEN. [Concomitant]
     Active Substance: IBUPROFEN
     Dates: start: 2000, end: 2010
  53. NUCYNTA [Concomitant]
     Active Substance: TAPENTADOL HYDROCHLORIDE
     Dates: start: 2000, end: 2010
  54. TRESIBA [Concomitant]
     Active Substance: INSULIN DEGLUDEC
     Dates: start: 2000, end: 2010
  55. DEXILANT [Suspect]
     Active Substance: DEXLANSOPRAZOLE
     Indication: GASTROOESOPHAGEAL REFLUX DISEASE
     Dosage: DELAYED RELEASE60.0MG UNKNOWN
     Route: 048
     Dates: start: 20140108
  56. PROTONIX [Suspect]
     Active Substance: PANTOPRAZOLE SODIUM
     Indication: GASTROOESOPHAGEAL REFLUX DISEASE
     Route: 065
     Dates: start: 20000201, end: 20191231
  57. VITAMIN B12 [Concomitant]
     Active Substance: CYANOCOBALAMIN
     Indication: NUTRITIONAL SUPPLEMENTATION
  58. RANITIDINE. [Concomitant]
     Active Substance: RANITIDINE
     Dates: start: 2002, end: 2004
  59. FLUOXET!NE [Concomitant]
     Dates: start: 2000, end: 2010
  60. SULINDAC. [Concomitant]
     Active Substance: SULINDAC
     Dates: start: 2000, end: 2010
  61. METRONIDAZOLE. [Concomitant]
     Active Substance: METRONIDAZOLE
     Dates: start: 2000, end: 2010
  62. LIDOCAINE?MENTHOL [Concomitant]
     Dates: start: 2000, end: 2010
  63. SUMATRIPRAN SUCCINATE [Concomitant]
     Dates: start: 2000, end: 2010
  64. PRAVASTATIN SODIUM. [Concomitant]
     Active Substance: PRAVASTATIN SODIUM
     Dates: start: 2000, end: 2010
  65. DUONEB [Concomitant]
     Active Substance: ALBUTEROL SULFATE\IPRATROPIUM BROMIDE
     Dates: start: 2000, end: 2010
  66. FEMHRT [Concomitant]
     Active Substance: ETHINYL ESTRADIOL\NORETHINDRONE ACETATE
     Dates: start: 2000, end: 2010
  67. HUMULIN NOS [Concomitant]
     Active Substance: INSULIN HUMAN
     Dates: start: 2000, end: 2010
  68. PERMETHRIN. [Concomitant]
     Active Substance: PERMETHRIN
     Dates: start: 2000, end: 2010
  69. WELLBUTRIN [Concomitant]
     Active Substance: BUPROPION HYDROCHLORIDE
     Dates: start: 2000, end: 2010
  70. NEXIUM [Suspect]
     Active Substance: ESOMEPRAZOLE MAGNESIUM
     Indication: GASTROOESOPHAGEAL REFLUX DISEASE
     Route: 048
     Dates: start: 20000201, end: 20191231
  71. DEXILANT [Suspect]
     Active Substance: DEXLANSOPRAZOLE
     Indication: GASTROOESOPHAGEAL REFLUX DISEASE
     Route: 065
     Dates: start: 20000201, end: 20191231
  72. ASPIRIN. [Concomitant]
     Active Substance: ASPIRIN
     Indication: PAIN
  73. SENNA [Concomitant]
     Active Substance: SENNA LEAF\SENNOSIDES\SENNOSIDES A AND B
     Indication: DRUG ABUSE
  74. ZANTAC [Concomitant]
     Active Substance: RANITIDINE HYDROCHLORIDE
     Dates: start: 2008, end: 2010
  75. ROLAIDS [Concomitant]
     Active Substance: CALCIUM CARBONATE\MAGNESIUM HYDROXIDE
     Dates: start: 2000, end: 2010
  76. DOXAZOSIN [Concomitant]
     Active Substance: DOXAZOSIN MESYLATE
     Dates: start: 2000, end: 2010
  77. DICYCLOMINE [Concomitant]
     Active Substance: DICYCLOMINE HYDROCHLORIDE
     Dates: start: 2000, end: 2010
  78. METHYLPRED [Concomitant]
     Active Substance: METHYLPREDNISOLONE
     Dates: start: 2000, end: 2010
  79. CYCLOBENZAPR [Concomitant]
     Active Substance: CYCLOBENZAPRINE
     Dates: start: 2000, end: 2010
  80. MELATONIN [Concomitant]
     Active Substance: MELATONIN
     Dates: start: 2000, end: 2010
  81. BASAGLAR KWIKPEN [Concomitant]
     Active Substance: INSULIN GLARGINE
     Dates: start: 2000, end: 2010
  82. TOPAMAX [Concomitant]
     Active Substance: TOPIRAMATE
     Dates: start: 2000, end: 2010
  83. JANUVIA [Concomitant]
     Active Substance: SITAGLIPTIN PHOSPHATE
     Dates: start: 2000, end: 2010
  84. SOLU?MEDROL [Concomitant]
     Active Substance: METHYLPREDNISOLONE SODIUM SUCCINATE
     Dates: start: 2000, end: 2010
  85. PENICILLIN [Concomitant]
     Active Substance: PENICILLIN
     Dates: start: 2000, end: 2010
  86. DESONIDE. [Concomitant]
     Active Substance: DESONIDE
     Dates: start: 2000, end: 2010
  87. PROTONIX [Suspect]
     Active Substance: PANTOPRAZOLE SODIUM
     Indication: GASTROOESOPHAGEAL REFLUX DISEASE
     Dosage: 40.0MG UNKNOWN
     Route: 065
     Dates: start: 2010
  88. PAXIL [Concomitant]
     Active Substance: PAROXETINE HYDROCHLORIDE
     Indication: DEPRESSION
  89. PEPTO?BISMOL [Concomitant]
     Active Substance: BISMUTH SUBSALICYLATE
     Dates: start: 2000, end: 2010
  90. TRAZODONE [Concomitant]
     Active Substance: TRAZODONE HYDROCHLORIDE
     Dates: start: 2000, end: 2010
  91. LISINOPRIL/HCTZ [Concomitant]
     Active Substance: HYDROCHLOROTHIAZIDE\LISINOPRIL
     Dates: start: 2000, end: 2010
  92. LORAZEPAM. [Concomitant]
     Active Substance: LORAZEPAM
     Dates: start: 2000, end: 2010
  93. NYAMYC [Concomitant]
     Active Substance: NYSTATIN
     Dates: start: 2000, end: 2010
  94. ZOCOR [Concomitant]
     Active Substance: SIMVASTATIN
     Dates: start: 2000, end: 2010
  95. MILK OF MAGNESIA [Concomitant]
     Active Substance: MAGNESIUM HYDROXIDE
     Dates: start: 2000, end: 2010
  96. BUTAL/ASA/CAFF [Concomitant]
     Dates: start: 2000, end: 2010
  97. TRIMOX [Concomitant]
     Active Substance: AMOXICILLIN
     Dates: start: 2000, end: 2010
  98. OXYCOD/ACETAMIN [Concomitant]
     Dates: start: 2000, end: 2010
  99. GLUCAGON. [Concomitant]
     Active Substance: GLUCAGON
     Dates: start: 2000, end: 2010
  100. DILACOR [Concomitant]
     Dates: start: 2000, end: 2010
  101. TRIAMCINOLONE [Concomitant]
     Active Substance: TRIAMCINOLONE
     Dates: start: 2000, end: 2010
  102. CITALOPRAM [Concomitant]
     Active Substance: CITALOPRAM HYDROBROMIDE
     Dates: start: 2000, end: 2010
  103. OROTHIAZIDE [Concomitant]
     Dates: start: 2000, end: 2010

REACTIONS (1)
  - Chronic kidney disease [Not Recovered/Not Resolved]

NARRATIVE: CASE EVENT DATE: 2016
